FAERS Safety Report 9003714 (Version 1)
Quarter: 2013Q1

REPORT INFORMATION
  Report Type: Spontaneous
  Country: US (occurrence: US)
  Receive Date: 20130108
  Receipt Date: 20130108
  Transmission Date: 20140127
  Serious: No
  Sender: FDA-Public Use
  Company Number: US-GLAXOSMITHKLINE-A0964993A

PATIENT
  Age: 67 Year
  Sex: Female

DRUGS (5)
  1. LOVAZA [Suspect]
     Indication: BLOOD TRIGLYCERIDES INCREASED
     Dosage: 1CAP PER DAY
     Route: 048
  2. SYNTHROID [Concomitant]
  3. METFORMIN [Concomitant]
  4. INDERAL [Concomitant]
  5. VALIUM [Concomitant]

REACTIONS (10)
  - Dyspnoea [Not Recovered/Not Resolved]
  - Throat tightness [Unknown]
  - Choking sensation [Unknown]
  - Sinus disorder [Unknown]
  - Cough [Unknown]
  - Influenza [Unknown]
  - Oropharyngeal pain [Unknown]
  - Eye irritation [Unknown]
  - Dysuria [Unknown]
  - Pollakiuria [Unknown]
